FAERS Safety Report 7393651-6 (Version None)
Quarter: 2011Q2

REPORT INFORMATION
  Report Type: 
  Country: None (occurrence: None)
  Receive Date: 20110405
  Receipt Date: 20090619
  Transmission Date: 20111010
  Serious: Yes (Hospitalization, Other)
  Sender: FDA-Public Use
  Company Number: US-BAYER-200924111NA

PATIENT
  Sex: Male
  Weight: 100 kg

DRUGS (10)
  1. HEPARIN SODIUM [Concomitant]
     Dosage: UNK
     Route: 042
     Dates: start: 20051202
  2. METOPROLOL [Concomitant]
     Dosage: UNK
     Route: 048
     Dates: start: 20080101
  3. PLAVIX [Concomitant]
     Dosage: UNK
     Route: 048
     Dates: start: 20080101
  4. COUMADIN [Concomitant]
  5. VERAPAMIL [Concomitant]
     Indication: CORONARY ARTERY BYPASS
     Dosage: UNK
     Route: 042
     Dates: start: 20051202
  6. LISINOPRIL [Concomitant]
     Dosage: UNK
     Route: 048
     Dates: start: 20050101
  7. TRASYLOL [Suspect]
     Indication: CORONARY ARTERY BYPASS
     Route: 042
     Dates: start: 20051202
  8. ISOSORBIDE [ISOSORBIDE] [Concomitant]
     Route: 048
  9. LIPITOR [Concomitant]
     Dosage: UNK
     Route: 048
     Dates: start: 20050101
  10. TRICOR [Concomitant]
     Route: 048

REACTIONS (9)
  - EMOTIONAL DISTRESS [None]
  - INJURY [None]
  - UNEVALUABLE EVENT [None]
  - MYOCARDIAL INFARCTION [None]
  - STRESS [None]
  - FEAR [None]
  - ANHEDONIA [None]
  - ANXIETY [None]
  - PAIN [None]
